FAERS Safety Report 13666530 (Version 1)
Quarter: 2017Q2

REPORT INFORMATION
  Report Type: Spontaneous
  Country: US (occurrence: US)
  Receive Date: 20170619
  Receipt Date: 20170619
  Transmission Date: 20170830
  Serious: No
  Sender: FDA-Public Use
  Company Number: US-ROCHE-1101677

PATIENT
  Sex: Female
  Weight: 108.1 kg

DRUGS (2)
  1. DOCETAXEL. [Concomitant]
     Active Substance: DOCETAXEL
     Indication: BREAST CANCER
     Route: 042
     Dates: start: 19710801
  2. XELODA [Suspect]
     Active Substance: CAPECITABINE
     Indication: BREAST CANCER
     Route: 065
     Dates: start: 20120801, end: 20120813

REACTIONS (7)
  - Erythema [Unknown]
  - Constipation [Unknown]
  - Peripheral swelling [Unknown]
  - Gastrointestinal motility disorder [Unknown]
  - Vomiting [Unknown]
  - Diarrhoea [Unknown]
  - Pain in extremity [Unknown]
